FAERS Safety Report 4886379-5 (Version None)
Quarter: 2006Q1

REPORT INFORMATION
  Report Type: 
  Country: None (occurrence: None)
  Receive Date: 20060118
  Receipt Date: 20060106
  Transmission Date: 20060701
  Serious: Yes (Hospitalization)
  Sender: FDA-Public Use
  Company Number: 2005PV006238

PATIENT
  Age: 63 Year
  Sex: Male

DRUGS (13)
  1. BYETTA [Suspect]
     Indication: DIABETES MELLITUS NON-INSULIN-DEPENDENT
     Dosage: 5 MCG BID; SC, 5 MCG, BID; SC
     Route: 058
     Dates: start: 20050101, end: 20051222
  2. BYETTA [Suspect]
     Indication: DIABETES MELLITUS NON-INSULIN-DEPENDENT
     Dosage: 5 MCG BID; SC, 5 MCG, BID; SC
     Route: 058
     Dates: start: 20051224
  3. TOPROL-XL [Concomitant]
  4. LASIX [Concomitant]
  5. COZAAR [Concomitant]
  6. LIPITOR [Concomitant]
  7. ASPIRIN [Concomitant]
  8. SAW PALMETTO [Concomitant]
  9. GLUCOPHAGE [Concomitant]
  10. VITAMIN E [Concomitant]
  11. SELENIUM SULFIDE [Concomitant]
  12. ZOLOFT [Concomitant]
  13. TYLENOL-500 [Concomitant]

REACTIONS (3)
  - BLOOD GLUCOSE INCREASED [None]
  - FALL [None]
  - FEMORAL NECK FRACTURE [None]
